FAERS Safety Report 6080826-1 (Version None)
Quarter: 2009Q1

REPORT INFORMATION
  Report Type: 
  Country: None (occurrence: None)
  Receive Date: 20090217
  Receipt Date: 20090209
  Transmission Date: 20090719
  Serious: Yes (Hospitalization, Other)
  Sender: FDA-Public Use
  Company Number: US-GENENTECH-276562

PATIENT
  Sex: Male
  Weight: 34.014 kg

DRUGS (7)
  1. AVASTIN [Suspect]
     Indication: RENAL CELL CARCINOMA
     Dosage: 15 MG/KG, Q3W
     Route: 042
     Dates: start: 20081209
  2. BORTEZOMIB [Suspect]
     Indication: RENAL CELL CARCINOMA
     Dosage: 1.8 MG/M2, DAY1+8/Q3W
     Route: 042
     Dates: start: 20081209
  3. FAMOTIDINE [Concomitant]
     Indication: DRUG USE FOR UNKNOWN INDICATION
  4. DOLASETRON [Concomitant]
     Indication: DRUG USE FOR UNKNOWN INDICATION
  5. DEXAMETHASONE [Concomitant]
     Indication: DRUG USE FOR UNKNOWN INDICATION
  6. BENADRYL [Concomitant]
     Indication: DRUG USE FOR UNKNOWN INDICATION
  7. VICODIN [Concomitant]
     Indication: DRUG USE FOR UNKNOWN INDICATION

REACTIONS (1)
  - LIVER ABSCESS [None]
